FAERS Safety Report 14201038 (Version 2)
Quarter: 2018Q4

REPORT INFORMATION
  Report Type: Spontaneous
  Country: US (occurrence: US)
  Receive Date: 20171117
  Receipt Date: 20181126
  Transmission Date: 20190204
  Serious: No
  Sender: FDA-Public Use
  Company Number: US-NOVOPROD-563273

PATIENT
  Age: 72 Year
  Sex: Female

DRUGS (1)
  1. NOVOLOG [Suspect]
     Active Substance: INSULIN ASPART
     Indication: TYPE 2 DIABETES MELLITUS
     Dosage: UNK
     Route: 058
     Dates: start: 20161219

REACTIONS (2)
  - Visual impairment [Unknown]
  - Grip strength decreased [Unknown]
